FAERS Safety Report 13022495 (Version 1)
Quarter: 2016Q4

REPORT INFORMATION
  Report Type: Spontaneous
  Country: US (occurrence: US)
  Receive Date: 20161213
  Receipt Date: 20161213
  Transmission Date: 20170207
  Serious: Yes (Hospitalization)
  Sender: FDA-Public Use
  Company Number: US-PFIZER INC-2016570850

PATIENT
  Age: 66 Year
  Sex: Male
  Weight: 109.7 kg

DRUGS (4)
  1. SUTENT [Suspect]
     Active Substance: SUNITINIB MALATE
     Indication: RENAL CELL CARCINOMA
     Dosage: 50 MG, 1X/DAY
     Route: 048
  2. METOPROLOL. [Concomitant]
     Active Substance: METOPROLOL
     Indication: BLOOD PRESSURE ABNORMAL
     Dosage: 250 MG, DAILY (ONE AND HALF TABLET 100MG TABLET IN MORNING AND 100MG AT NIGHT)
  3. COUMADIN [Suspect]
     Active Substance: WARFARIN SODIUM
     Dosage: UNK
  4. LIPITOR [Concomitant]
     Active Substance: ATORVASTATIN CALCIUM
     Indication: HYPERCHOLESTEROLAEMIA
     Dosage: UNK

REACTIONS (1)
  - Blood disorder [Recovered/Resolved]

NARRATIVE: CASE EVENT DATE: 20161115
